FAERS Safety Report 20920044 (Version 1)
Quarter: 2022Q2

REPORT INFORMATION
  Report Type: Spontaneous
  Country: US (occurrence: None)
  Receive Date: 20220604
  Receipt Date: 20220604
  Transmission Date: 20220721
  Serious: Yes (Hospitalization)
  Sender: FDA-Public Use
  Company Number: None

PATIENT
  Age: 74 Year
  Sex: Male
  Weight: 70.3 kg

DRUGS (4)
  1. RADIUM RA-223 DICHLORIDE [Suspect]
     Active Substance: RADIUM RA-223 DICHLORIDE
     Dates: end: 20220418
  2. LUPRON [Concomitant]
     Active Substance: LEUPROLIDE ACETATE
  3. OXYCODONE [Concomitant]
     Active Substance: OXYCODONE
  4. ZOMETA [Concomitant]
     Active Substance: ZOLEDRONIC ACID

REACTIONS (14)
  - Muscular weakness [None]
  - Fall [None]
  - Pain [None]
  - Hypotension [None]
  - Oropharyngeal pain [None]
  - Productive cough [None]
  - SARS-CoV-2 test positive [None]
  - Decreased appetite [None]
  - Musculoskeletal chest pain [None]
  - Abdominal pain lower [None]
  - Bone pain [None]
  - Back pain [None]
  - Self-medication [None]
  - Therapeutic product effect incomplete [None]

NARRATIVE: CASE EVENT DATE: 20220514
